FAERS Safety Report 8533078-4 (Version None)
Quarter: 2012Q3

REPORT INFORMATION
  Report Type: 
  Country: None (occurrence: None)
  Receive Date: 20120724
  Receipt Date: 20120713
  Transmission Date: 20120928
  Serious: Yes (Hospitalization, Other)
  Sender: FDA-Public Use
  Company Number: CA-BRISTOL-MYERS SQUIBB COMPANY-16202483

PATIENT
  Age: 72 Year
  Sex: Female

DRUGS (17)
  1. LYRICA [Suspect]
     Dosage: ALSO TAKEN 150MG
  2. NEXIUM [Concomitant]
  3. ORENCIA [Suspect]
     Indication: RHEUMATOID ARTHRITIS
     Dosage: LAST DOSE20OCT11,15DEC11,16DEC11,7FEB12,6MAR12,13JUL12 INF:11,57-500MG-ALSO EVERY 4 WEEK,EXP:MA2014
     Route: 042
     Dates: start: 20110801
  4. ARAVA [Suspect]
  5. PRAMIPEXOLE DIHYDROCHLORIDE [Concomitant]
  6. AMILORIDE HYDROCHLORIDE [Concomitant]
  7. PREDNISONE [Suspect]
     Dosage: ALSO TAKEN 15 MG
  8. CYMBALTA [Suspect]
  9. ALENDRONATE SODIUM [Concomitant]
  10. OXYBUTYNIN [Concomitant]
  11. NAPROXEN [Concomitant]
  12. ATENOLOL [Concomitant]
  13. ACETAMINOPHEN [Concomitant]
  14. DILAUDID [Suspect]
  15. CALCIUM [Concomitant]
  16. CALCITONIN SALMON [Concomitant]
  17. HYDROMORPHONE HCL [Concomitant]

REACTIONS (15)
  - NAUSEA [None]
  - ASTHENIA [None]
  - URINARY TRACT INFECTION [None]
  - DIARRHOEA [None]
  - ABDOMINAL PAIN [None]
  - VOMITING [None]
  - BURSITIS [None]
  - SLEEP APNOEA SYNDROME [None]
  - HAEMOGLOBIN DECREASED [None]
  - WEIGHT DECREASED [None]
  - INFLAMMATION [None]
  - WOUND COMPLICATION [None]
  - VISUAL IMPAIRMENT [None]
  - ONYCHOCLASIS [None]
  - TINNITUS [None]
